FAERS Safety Report 7462256-0 (Version None)
Quarter: 2011Q2

REPORT INFORMATION
  Report Type: 
  Country: None (occurrence: None)
  Receive Date: 20110506
  Receipt Date: 20110425
  Transmission Date: 20111010
  Serious: No
  Sender: FDA-Public Use
  Company Number: US-BAYER-2011-036422

PATIENT
  Sex: Female

DRUGS (1)
  1. MIRENA [Suspect]
     Indication: CONTRACEPTION
     Dosage: 20 ?G, CONT
     Route: 015
     Dates: start: 20080801

REACTIONS (9)
  - INFECTION [None]
  - SWELLING [None]
  - UTERINE PAIN [None]
  - COITAL BLEEDING [None]
  - INJURY [None]
  - AMENORRHOEA [None]
  - MENSTRUATION IRREGULAR [None]
  - ABDOMINAL PAIN [None]
  - UNEVALUABLE EVENT [None]
